FAERS Safety Report 4937754-1 (Version None)
Quarter: 2006Q1

REPORT INFORMATION
  Report Type: 
  Country: None (occurrence: None)
  Receive Date: 20060309
  Receipt Date: 20060131
  Transmission Date: 20060701
  Serious: Yes (Hospitalization)
  Sender: FDA-Public Use
  Company Number: US-ROCHE-434730

PATIENT
  Age: 50 Year
  Sex: Female

DRUGS (4)
  1. PEGASYS [Suspect]
     Indication: DRUG USE FOR UNKNOWN INDICATION
     Dosage: DISCONTINUED FOR ONE WEEK.
     Route: 058
     Dates: start: 20051214
  2. PEGASYS [Suspect]
     Route: 058
  3. COPEGUS [Suspect]
     Indication: DRUG USE FOR UNKNOWN INDICATION
     Dosage: DISCONTINUED FOR ONE WEEK.
     Route: 048
     Dates: start: 20051214
  4. COPEGUS [Suspect]
     Route: 048

REACTIONS (7)
  - CRYING [None]
  - DEPRESSION [None]
  - FACE OEDEMA [None]
  - LOSS OF CONSCIOUSNESS [None]
  - OEDEMA [None]
  - OEDEMA PERIPHERAL [None]
  - PYREXIA [None]
